FAERS Safety Report 9758414 (Version 1)
Quarter: 2013Q4

REPORT INFORMATION
  Report Type: Spontaneous
  Country: US (occurrence: US)
  Receive Date: 20131216
  Receipt Date: 20131216
  Transmission Date: 20140711
  Serious: Yes (Other)
  Sender: FDA-Public Use
  Company Number: CHPA2013US018147

PATIENT
  Age: 46 Year
  Sex: Female

DRUGS (1)
  1. THERAFLU NIGHTTIME SEVERE COLD + COUGH [Suspect]
     Dosage: UNK
     Route: 048

REACTIONS (1)
  - Coeliac disease [Not Recovered/Not Resolved]
